FAERS Safety Report 10373906 (Version 1)
Quarter: 2014Q1

REPORT INFORMATION
  Report Type: Spontaneous
  Country: US (occurrence: None)
  Receive Date: 20140306
  Receipt Date: 20140306
  Transmission Date: 20141002
  Serious: Yes (Other)
  Sender: FDA-Public Use
  Company Number: 163-21880-13010853

PATIENT
  Age: 68 Year
  Sex: Female
  Weight: 112.04 kg

DRUGS (3)
  1. REVLIMID [Suspect]
     Indication: ACUTE MYELOID LEUKAEMIA
     Route: 048
     Dates: start: 20121217, end: 20121220
  2. VIDAZA (AZACITIDINE) (UNKNOWN) [Concomitant]
  3. NEUPOGEN (FILGRASTIM) (UNKNOWN) [Concomitant]

REACTIONS (5)
  - Hypersensitivity [None]
  - Local swelling [None]
  - Erythema [None]
  - Urticaria [None]
  - Platelet count decreased [None]
